FAERS Safety Report 6961146-7 (Version None)
Quarter: 2010Q3

REPORT INFORMATION
  Report Type: 
  Country: None (occurrence: None)
  Receive Date: 20100901
  Receipt Date: 20100825
  Transmission Date: 20110219
  Serious: Yes (Death, Hospitalization, Other)
  Sender: FDA-Public Use
  Company Number: UG-ABBOTT-10P-167-0657299-00

PATIENT
  Sex: Female

DRUGS (4)
  1. ALUVIA TABLETS [Suspect]
     Indication: HIV INFECTION
     Route: 048
     Dates: start: 20100513, end: 20100713
  2. RALTEGRAVIR [Concomitant]
     Indication: HIV INFECTION
     Dates: start: 20100513, end: 20100713
  3. AMOXICILLIN [Concomitant]
     Indication: PRODUCT USED FOR UNKNOWN INDICATION
     Dates: start: 20100610, end: 20100615
  4. COTRIMAXAZOLE [Concomitant]
     Indication: PRODUCT USED FOR UNKNOWN INDICATION
     Dates: start: 20050518

REACTIONS (10)
  - BACTERIAL SEPSIS [None]
  - DIARRHOEA [None]
  - HEPATIC FAILURE [None]
  - HEPATITIS B [None]
  - HYPERSENSITIVITY [None]
  - ILL-DEFINED DISORDER [None]
  - JAUNDICE [None]
  - RENAL DISORDER [None]
  - THROMBOCYTOPENIA [None]
  - VOMITING [None]
